FAERS Safety Report 25995025 (Version 2)
Quarter: 2025Q4

REPORT INFORMATION
  Report Type: Spontaneous
  Country: EU (occurrence: EU)
  Receive Date: 20251104
  Receipt Date: 20251106
  Transmission Date: 20260118
  Serious: Yes (Life-Threatening, Hospitalization, Other)
  Sender: ASTELLAS
  Company Number: EU-ASTELLAS-2025-AER-060904

PATIENT
  Age: 67 Year
  Sex: Male

DRUGS (4)
  1. TACROLIMUS [Suspect]
     Active Substance: TACROLIMUS
     Indication: Heart transplant
     Route: 065
  2. TACROLIMUS [Suspect]
     Active Substance: TACROLIMUS
     Dosage: BASED ON CLINICAL STATUS AND DRUG LEVEL DETERMINATIONS, IMMUNOSUPPRESSIVE THERAPY WAS MODIFIED
     Route: 065
  3. MYCOPHENOLIC ACID [Concomitant]
     Active Substance: MYCOPHENOLIC ACID
     Indication: Heart transplant
     Route: 065
  4. MYCOPHENOLIC ACID [Concomitant]
     Active Substance: MYCOPHENOLIC ACID
     Dosage: BASED ON CLINICAL STATUS AND DRUG LEVEL DETERMINATIONS, IMMUNOSUPPRESSIVE THERAPY WAS MODIFIED
     Route: 065

REACTIONS (5)
  - Pneumocystis jirovecii pneumonia [Recovering/Resolving]
  - Acute respiratory distress syndrome [Recovering/Resolving]
  - Aspergillus infection [Recovering/Resolving]
  - Klebsiella infection [Recovering/Resolving]
  - Pathogen resistance [Recovering/Resolving]
